FAERS Safety Report 17430919 (Version 5)
Quarter: 2020Q1

REPORT INFORMATION
  Report Type: Report from Study
  Country: None (occurrence: ES)
  Receive Date: 20200218
  Receipt Date: 20200309
  Transmission Date: 20200409
  Serious: Yes (Death, Hospitalization, Other)
  Sender: FDA-Public Use
  Company Number: ES-ABBVIE-20K-144-3280970-00

PATIENT
  Age: 76 Year
  Sex: Female

DRUGS (1)
  1. DUODOPA [Suspect]
     Active Substance: CARBIDOPA\LEVODOPA
     Indication: PARKINSON^S DISEASE
     Route: 050
     Dates: start: 20120419

REACTIONS (8)
  - Urinary tract infection [Fatal]
  - Blood glucose increased [Recovered/Resolved]
  - Lethargy [Not Recovered/Not Resolved]
  - Blood copper decreased [Not Recovered/Not Resolved]
  - Blood pressure abnormal [Fatal]
  - Blood glucose abnormal [Fatal]
  - Device dislocation [Recovering/Resolving]
  - Somnolence [Not Recovered/Not Resolved]

NARRATIVE: CASE EVENT DATE: 202002
